FAERS Safety Report 5096722-2 (Version None)
Quarter: 2006Q3

REPORT INFORMATION
  Report Type: 
  Country: None (occurrence: None)
  Receive Date: 20060831
  Receipt Date: 20060822
  Transmission Date: 20061208
  Serious: Yes (Death)
  Sender: FDA-Public Use
  Company Number: 2006100791

PATIENT
  Sex: Female
  Weight: 60 kg

DRUGS (2)
  1. NICORETTE [Suspect]
     Indication: SMOKING CESSATION THERAPY
     Dosage: UNSPECIFIED DAILY, TRANSDERMAL
     Route: 062
     Dates: start: 19940112, end: 19940115
  2. ORAL CONTRACEPTIVE NOS (ORAL CONTRACEPTIVE NOS) [Concomitant]

REACTIONS (1)
  - CEREBRAL HAEMORRHAGE [None]
